FAERS Safety Report 24959672 (Version 1)
Quarter: 2025Q1

REPORT INFORMATION
  Report Type: Spontaneous
  Country: US (occurrence: None)
  Receive Date: 20250211
  Receipt Date: 20250211
  Transmission Date: 20250409
  Serious: Yes (Life-Threatening, Other)
  Sender: FDA-CTU
  Company Number: None

PATIENT
  Age: 57 Year
  Sex: Male
  Weight: 86.18 kg

DRUGS (1)
  1. MINOCYCLINE [Suspect]
     Active Substance: MINOCYCLINE HYDROCHLORIDE
     Route: 050
     Dates: start: 20241203, end: 20241212

REACTIONS (14)
  - Nausea [None]
  - Brain fog [None]
  - Heart rate increased [None]
  - Diarrhoea [None]
  - Fatigue [None]
  - Vertigo [None]
  - Confusional state [None]
  - Seizure [None]
  - Vomiting [None]
  - Pyrexia [None]
  - Chills [None]
  - Near death experience [None]
  - Delusion [None]
  - Suicidal behaviour [None]

NARRATIVE: CASE EVENT DATE: 20241209
